FAERS Safety Report 7822981-6 (Version None)
Quarter: 2011Q4

REPORT INFORMATION
  Report Type: 
  Country: None (occurrence: None)
  Receive Date: 20111018
  Receipt Date: 20110425
  Transmission Date: 20120403
  Serious: No
  Sender: FDA-Public Use
  Company Number: US-ASTRAZENECA-2011SE23586

PATIENT
  Age: 56 Year
  Sex: Female
  Weight: 81.6 kg

DRUGS (6)
  1. PRAMITIXOLE [Concomitant]
     Indication: RESTLESS LEGS SYNDROME
  2. SYMBICORT [Suspect]
     Indication: CHRONIC OBSTRUCTIVE PULMONARY DISEASE
     Dosage: 160/4.5 MCG IN THE MORNING
     Route: 055
  3. ESTRADIOL [Concomitant]
     Indication: MENOPAUSE
  4. SYMBICORT [Suspect]
     Dosage: 160/4.5 MCG WHEN NEEDED
     Route: 055
  5. SEROQUEL [Suspect]
     Route: 048
  6. PROZAC [Concomitant]

REACTIONS (4)
  - CHEST DISCOMFORT [None]
  - WEIGHT INCREASED [None]
  - PNEUMONIA [None]
  - DRUG INEFFECTIVE [None]
